FAERS Safety Report 14912005 (Version 2)
Quarter: 2018Q2

REPORT INFORMATION
  Report Type: Spontaneous
  Country: US (occurrence: US)
  Receive Date: 20180518
  Receipt Date: 20180524
  Transmission Date: 20180711
  Serious: Yes (Hospitalization, Other)
  Sender: FDA-Public Use
  Company Number: US-RECORDATI RARE DISEASES INC.-US-R13005-18-00130

PATIENT
  Age: 28 Year
  Sex: Male

DRUGS (2)
  1. PANHEMATIN [Suspect]
     Active Substance: HEMIN
     Indication: PRODUCT USED FOR UNKNOWN INDICATION
     Route: 065
  2. DEXTROSE. [Concomitant]
     Active Substance: DEXTROSE
     Indication: PRODUCT USED FOR UNKNOWN INDICATION
     Route: 065

REACTIONS (3)
  - Off label use [Unknown]
  - Blood disorder [Unknown]
  - Skin discolouration [Unknown]

NARRATIVE: CASE EVENT DATE: 20180509
